FAERS Safety Report 19231664 (Version 1)
Quarter: 2021Q2

REPORT INFORMATION
  Report Type: Spontaneous
  Country: NL (occurrence: NL)
  Receive Date: 20210507
  Receipt Date: 20210507
  Transmission Date: 20210717
  Serious: Yes (Hospitalization)
  Sender: FDA-Public Use
  Company Number: NL-SA-2021SA143954

PATIENT
  Sex: Female
  Weight: 73 kg

DRUGS (2)
  1. CLOPIDOGREL BISULFATE. [Suspect]
     Active Substance: CLOPIDOGREL BISULFATE
     Indication: PRODUCT USED FOR UNKNOWN INDICATION
     Dosage: 0.5 DF (PATIENT TOOK ONLY HALF A YEAR AND A HALF)
     Dates: start: 2020
  2. METOPROLOL TARTRATE. [Concomitant]
     Active Substance: METOPROLOL TARTRATE
     Dosage: 30 MG NO ADVERSE EFFECTS FOR 25 YEARS

REACTIONS (5)
  - Red blood cell sedimentation rate increased [Not Recovered/Not Resolved]
  - Muscle spasms [Not Recovered/Not Resolved]
  - Osteoarthritis [Not Recovered/Not Resolved]
  - Acidosis [Not Recovered/Not Resolved]
  - Dizziness [Not Recovered/Not Resolved]
